FAERS Safety Report 9203348 (Version 3)
Quarter: 2013Q3

REPORT INFORMATION
  Report Type: Spontaneous
  Country: JP (occurrence: JP)
  Receive Date: 20130402
  Receipt Date: 20130828
  Transmission Date: 20140515
  Serious: Yes (Life-Threatening, Other)
  Sender: FDA-Public Use
  Company Number: JP-JNJFOC-20130315298

PATIENT
  Age: 8 Decade
  Sex: Male

DRUGS (10)
  1. DUROTEP MT [Suspect]
     Indication: PAIN
     Route: 062
     Dates: start: 20120219, end: 20120221
  2. DUROTEP MT [Suspect]
     Indication: PAIN
     Route: 062
     Dates: start: 20120214, end: 20120218
  3. GABAPENTIN [Suspect]
     Indication: PAIN
     Route: 048
     Dates: start: 20120214, end: 20120219
  4. GABAPENTIN [Suspect]
     Indication: PAIN
     Route: 048
     Dates: start: 20071022, end: 20120213
  5. GABAPENTIN [Suspect]
     Indication: PAIN
     Route: 048
     Dates: start: 20120220
  6. BACLOFEN [Suspect]
     Indication: PAIN
     Route: 048
     Dates: start: 20110304, end: 20120228
  7. BACLOFEN [Suspect]
     Indication: PAIN
     Route: 048
     Dates: start: 20120229
  8. MORPHINE HYDROCHLORIDE [Suspect]
     Indication: PAIN
     Route: 065
     Dates: start: 20120214, end: 20120220
  9. MORPHINE HYDROCHLORIDE [Suspect]
     Indication: PAIN
     Route: 065
     Dates: start: 20120204, end: 20120213
  10. DUROTEP MT [Suspect]
     Indication: PAIN
     Route: 062
     Dates: start: 20100415, end: 20120213

REACTIONS (7)
  - Acute myocardial infarction [Recovering/Resolving]
  - Altered state of consciousness [Recovering/Resolving]
  - Drug withdrawal syndrome [Recovering/Resolving]
  - Overdose [Recovering/Resolving]
  - Chest discomfort [Recovering/Resolving]
  - Dyskinesia [Recovering/Resolving]
  - Dyspnoea [Recovering/Resolving]
